FAERS Safety Report 6500400-X (Version None)
Quarter: 2009Q4

REPORT INFORMATION
  Report Type: 
  Country: None (occurrence: None)
  Receive Date: 20091127
  Receipt Date: 20090529
  Transmission Date: 20100525
  Serious: Yes (Hospitalization, Disabling)
  Sender: FDA-Public Use
  Company Number: WAES 0704USA00281

PATIENT
  Age: 52 Year
  Sex: Female
  Weight: 78.9259 kg

DRUGS (5)
  1. FOSAMAX [Suspect]
     Indication: OSTEOPOROSIS
     Dosage: PO : 70 MG/WKY/PO
     Route: 048
     Dates: start: 20050412, end: 20051229
  2. FOSAMAX [Suspect]
     Indication: OSTEOPOROSIS
     Dosage: PO : 70 MG/WKY/PO
     Route: 048
     Dates: start: 20030101
  3. SYNTHROID [Concomitant]
  4. VIVELLE-DOT [Concomitant]
  5. AMILORIDE HYDROCHLORIDE [Concomitant]

REACTIONS (9)
  - ABSCESS JAW [None]
  - DRY MOUTH [None]
  - EAR INFECTION [None]
  - FLUID RETENTION [None]
  - INTERVERTEBRAL DISC PROTRUSION [None]
  - OSTEOMYELITIS [None]
  - OSTEONECROSIS [None]
  - TOOTH FRACTURE [None]
  - TOOTHACHE [None]
